FAERS Safety Report 6784771-5 (Version None)
Quarter: 2010Q2

REPORT INFORMATION
  Report Type: 
  Country: None (occurrence: None)
  Receive Date: 20100622
  Receipt Date: 20100609
  Transmission Date: 20101027
  Serious: Yes (Other)
  Sender: FDA-Public Use
  Company Number: PHHY2010DE37127

PATIENT
  Age: 61 Year
  Sex: Male

DRUGS (9)
  1. GLEEVEC [Suspect]
     Indication: CHRONIC MYELOID LEUKAEMIA
     Dosage: 600 MG, UNK
  2. GLEEVEC [Suspect]
     Dosage: 300 MG, UNK
  3. GLEEVEC [Suspect]
     Dosage: 400 MG PER DAY
  4. APSOMOL [Concomitant]
     Dosage: UNK
  5. SYMBICORT [Concomitant]
     Dosage: 80 UG/4.5 UG, 2 PUFFS MORNING AND EVENING
  6. THEOPHYLLINE SUSTAINED RELEASE [Concomitant]
     Dosage: 500 MG, MORNING AND EVENING
  7. ACETYLCYSTEINE [Concomitant]
     Dosage: 600 MG, IN EVENING
     Route: 048
  8. SPIRIVA [Concomitant]
     Dosage: 18 UG IN MORNING
  9. VERAPAMIL [Concomitant]
     Dosage: 120 MG IN MORNING AND EVENING

REACTIONS (11)
  - ANAEMIA MACROCYTIC [None]
  - BLEPHAROPLASTY [None]
  - CONNECTIVE TISSUE INFLAMMATION [None]
  - HAEMOGLOBIN DECREASED [None]
  - HYPERKERATOSIS [None]
  - LEUKOPENIA [None]
  - LYMPHOCYTIC INFILTRATION [None]
  - MEAN CELL VOLUME INCREASED [None]
  - PERIORBITAL OEDEMA [None]
  - SKIN OEDEMA [None]
  - WHITE BLOOD CELL COUNT DECREASED [None]
